FAERS Safety Report 14765574 (Version 3)
Quarter: 2018Q3

REPORT INFORMATION
  Report Type: Spontaneous
  Country: CZ (occurrence: CZ)
  Receive Date: 20180416
  Receipt Date: 20180709
  Transmission Date: 20181010
  Serious: Yes (Other)
  Sender: FDA-Public Use
  Company Number: CZ-PFIZER INC-2018150075

PATIENT
  Age: 73 Year
  Sex: Female

DRUGS (3)
  1. SIROLIMUS. [Suspect]
     Active Substance: SIROLIMUS
     Indication: BOWEN^S DISEASE
     Dosage: 1 MG, DAILY
     Route: 065
     Dates: start: 2008
  2. SIROLIMUS. [Suspect]
     Active Substance: SIROLIMUS
     Indication: IMMUNOSUPPRESSANT DRUG THERAPY
  3. PREDNISONE. [Suspect]
     Active Substance: PREDNISONE
     Indication: BOWEN^S DISEASE
     Dosage: 5 MG, DAILY
     Dates: start: 2008

REACTIONS (1)
  - Diabetes mellitus [Unknown]
